FAERS Safety Report 14741184 (Version 2)
Quarter: 2018Q2

REPORT INFORMATION
  Report Type: Other
  Country: NL (occurrence: NL)
  Receive Date: 20180410
  Receipt Date: 20180504
  Transmission Date: 20180711
  Serious: Yes (Other)
  Sender: FDA-Public Use
  Company Number: NL-ASPEN-GLO2018NL003260

PATIENT
  Sex: Female

DRUGS (2)
  1. DEXAMETHASONE. [Suspect]
     Active Substance: DEXAMETHASONE
     Indication: VIRILISM
     Dosage: 25 ?G, QD
     Route: 064
  2. DEXAMETHASONE. [Suspect]
     Active Substance: DEXAMETHASONE
     Indication: GENE MUTATION
     Dosage: 1.5 MG, QD
     Route: 064

REACTIONS (7)
  - Adrenogenital syndrome [Recovering/Resolving]
  - Cleft palate [Recovering/Resolving]
  - Learning disability [Unknown]
  - Cleft lip [Recovering/Resolving]
  - Foetal exposure during pregnancy [Unknown]
  - Virilism [Recovering/Resolving]
  - Memory impairment [Unknown]
